FAERS Safety Report 25282896 (Version 1)
Quarter: 2025Q2

REPORT INFORMATION
  Report Type: Spontaneous
  Country: US (occurrence: US)
  Receive Date: 20250508
  Receipt Date: 20250508
  Transmission Date: 20250716
  Serious: No
  Sender: MERCK SHARP & DOHME LLC
  Company Number: US-009507513-2278342

PATIENT
  Age: 10 Decade
  Sex: Male

DRUGS (1)
  1. PEMBROLIZUMAB [Suspect]
     Active Substance: PEMBROLIZUMAB
     Indication: Skin mass
     Dosage: COMPLETED 6 MONTHS OF IMMUNOTHERAPY

REACTIONS (1)
  - Skin hypopigmentation [Unknown]
